FAERS Safety Report 21232208 (Version 1)
Quarter: 2022Q3

REPORT INFORMATION
  Report Type: Spontaneous
  Country: US (occurrence: None)
  Receive Date: 20220818
  Receipt Date: 20220818
  Transmission Date: 20221027
  Serious: No
  Sender: FDA-Public Use
  Company Number: None

PATIENT
  Age: 39 Year
  Sex: Female
  Weight: 80.6 kg

DRUGS (1)
  1. EVUSHELD [Suspect]
     Active Substance: CILGAVIMAB\TIXAGEVIMAB
     Indication: Multiple sclerosis
     Dosage: OTHER FREQUENCY : ONCE;?
     Route: 030
     Dates: start: 20220805, end: 20220805

REACTIONS (4)
  - Medication error [None]
  - Drug monitoring procedure incorrectly performed [None]
  - Product preparation error [None]
  - Product use issue [None]

NARRATIVE: CASE EVENT DATE: 20220805
